FAERS Safety Report 6846769-8 (Version None)
Quarter: 2010Q3

REPORT INFORMATION
  Report Type: 
  Country: None (occurrence: None)
  Receive Date: 20100715
  Receipt Date: 20070919
  Transmission Date: 20110219
  Serious: Yes (Other)
  Sender: FDA-Public Use
  Company Number: US-PFIZER INC-2007079445

PATIENT
  Age: 42 Year
  Sex: Female
  Weight: 100 kg

DRUGS (1)
  1. CHANTIX [Suspect]
     Indication: SMOKING CESSATION THERAPY
     Route: 048
     Dates: start: 20070201, end: 20070401

REACTIONS (4)
  - CONSTIPATION [None]
  - HEADACHE [None]
  - SOMNOLENCE [None]
  - WEIGHT INCREASED [None]
